FAERS Safety Report 10218339 (Version 1)
Quarter: 2014Q2

REPORT INFORMATION
  Report Type: Spontaneous
  Country: US (occurrence: US)
  Receive Date: 20140605
  Receipt Date: 20140605
  Transmission Date: 20141212
  Serious: Yes (Hospitalization)
  Sender: FDA-Public Use
  Company Number: US-BAYER-2014-082620

PATIENT
  Age: 22 Year
  Sex: Female
  Weight: 108.84 kg

DRUGS (2)
  1. YASMIN [Suspect]
  2. MACROBID [Concomitant]
     Dosage: 100 MG
     Dates: start: 20030405

REACTIONS (1)
  - Deep vein thrombosis [None]
